FAERS Safety Report 8111715-6 (Version None)
Quarter: 2012Q1

REPORT INFORMATION
  Report Type: 
  Country: None (occurrence: None)
  Receive Date: 20120203
  Receipt Date: 20120123
  Transmission Date: 20120608
  Serious: Yes (Other)
  Sender: FDA-Public Use
  Company Number: US-JNJFOC-20120200496

PATIENT
  Age: 63 Year
  Sex: Female
  Weight: 86.17 kg

DRUGS (6)
  1. ALL OTHER THERAPEUTIC PRODUCTS [Concomitant]
  2. CELEBREX [Suspect]
     Indication: PAIN
     Route: 048
     Dates: start: 20111208
  3. IBUPROFEN [Suspect]
     Indication: PAIN
     Route: 065
  4. ACETAMINOPHEN [Suspect]
     Route: 048
  5. ACETAMINOPHEN [Suspect]
     Indication: PAIN
     Route: 048
  6. TRAZODONE HCL [Concomitant]

REACTIONS (4)
  - ARTHRALGIA [None]
  - GASTRIC HAEMORRHAGE [None]
  - INSOMNIA [None]
  - DRUG INEFFECTIVE [None]
